FAERS Safety Report 13842407 (Version 1)
Quarter: 2017Q3

REPORT INFORMATION
  Report Type: Spontaneous
  Country: GB (occurrence: GB)
  Receive Date: 20170808
  Receipt Date: 20170808
  Transmission Date: 20171127
  Serious: Yes (Life-Threatening)
  Sender: FDA-Public Use
  Company Number: GB-ACCORD-056653

PATIENT
  Age: 65 Year
  Sex: Male
  Weight: 93 kg

DRUGS (12)
  1. ACICLOVIR [Concomitant]
     Active Substance: ACYCLOVIR
  2. ATENOLOL/ATENOLOL HYDROCHLORIDE [Concomitant]
  3. OMEPRAZOLE. [Concomitant]
     Active Substance: OMEPRAZOLE
  4. BENDROFLUMETHIAZIDE [Concomitant]
     Active Substance: BENDROFLUMETHIAZIDE
  5. DEXAMETHASONE. [Concomitant]
     Active Substance: DEXAMETHASONE
  6. ENALAPRIL [Concomitant]
     Active Substance: ENALAPRIL
  7. THALIDOMIDE [Concomitant]
     Active Substance: THALIDOMIDE
  8. BORTEZOMIB [Concomitant]
     Active Substance: BORTEZOMIB
  9. TINZAPARIN [Concomitant]
     Active Substance: TINZAPARIN
  10. DOCUSATE/DOCUSATE CALCIUM/DOCUSATE POTASSIUM/DOCUSATE SODIUM [Concomitant]
  11. PRAVASTATIN. [Concomitant]
     Active Substance: PRAVASTATIN
  12. ALLOPURINOL. [Suspect]
     Active Substance: ALLOPURINOL
     Indication: TUMOUR LYSIS SYNDROME
     Route: 048
     Dates: start: 20170522, end: 20170529

REACTIONS (5)
  - Off label use [Unknown]
  - Acute kidney injury [Recovered/Resolved]
  - Drug reaction with eosinophilia and systemic symptoms [Recovered/Resolved]
  - Anuria [Recovered/Resolved]
  - Hypotension [Recovered/Resolved]

NARRATIVE: CASE EVENT DATE: 20170616
